FAERS Safety Report 7223926-2 (Version None)
Quarter: 2011Q1

REPORT INFORMATION
  Report Type: 
  Country: None (occurrence: None)
  Receive Date: 20110113
  Receipt Date: 20110104
  Transmission Date: 20110831
  Serious: No
  Sender: FDA-Public Use
  Company Number: US-BIOGENIDEC-2010BI027412

PATIENT
  Age: 60 Year
  Sex: Female

DRUGS (1)
  1. TYSABRI [Suspect]
     Indication: MULTIPLE SCLEROSIS
     Route: 042
     Dates: start: 20080822

REACTIONS (7)
  - FATIGUE [None]
  - INFLUENZA [None]
  - BALANCE DISORDER [None]
  - MEMORY IMPAIRMENT [None]
  - DIPLOPIA [None]
  - VISUAL IMPAIRMENT [None]
  - FACE INJURY [None]
